FAERS Safety Report 8295642-X (Version None)
Quarter: 2012Q2

REPORT INFORMATION
  Report Type: 
  Country: None (occurrence: None)
  Receive Date: 20120418
  Receipt Date: 20120412
  Transmission Date: 20120825
  Serious: Yes (Hospitalization)
  Sender: FDA-Public Use
  Company Number: GB-MERCK-1204GBR00048

PATIENT
  Age: 60 Year
  Sex: Female

DRUGS (1)
  1. JANUVIA [Suspect]
     Route: 048
     Dates: start: 20120101

REACTIONS (3)
  - LIVER FUNCTION TEST ABNORMAL [None]
  - HEPATITIS ACUTE [None]
  - ABDOMINAL PAIN [None]
